FAERS Safety Report 6731818-8 (Version None)
Quarter: 2010Q2

REPORT INFORMATION
  Report Type: 
  Country: None (occurrence: None)
  Receive Date: 20100519
  Receipt Date: 20100510
  Transmission Date: 20101027
  Serious: Yes (Hospitalization)
  Sender: FDA-Public Use
  Company Number: FR-ASTRAZENECA-2010SE21112

PATIENT
  Age: 79 Year
  Sex: Female

DRUGS (5)
  1. TENORMIN [Suspect]
     Route: 048
  2. DI ANTALVIC [Suspect]
     Route: 048
  3. CACIT VITAMIN D3 [Concomitant]
     Route: 048
  4. FOSAVANCE [Concomitant]
     Route: 048
  5. LOVENOX [Concomitant]
     Route: 058

REACTIONS (2)
  - FALL [None]
  - PUBIS FRACTURE [None]
